FAERS Safety Report 7383735-0 (Version None)
Quarter: 2011Q1

REPORT INFORMATION
  Report Type: 
  Country: None (occurrence: None)
  Receive Date: 20110330
  Receipt Date: 20110322
  Transmission Date: 20110831
  Serious: Yes (Hospitalization)
  Sender: FDA-Public Use
  Company Number: US-ROCHE-767347

PATIENT
  Sex: Female
  Weight: 73 kg

DRUGS (2)
  1. IRINOTECAN [Suspect]
     Indication: OVARIAN CANCER
     Dosage: LAST DOSE PRIOR TO SAE: 09 MARCH 2011.
     Route: 042
     Dates: start: 20110218
  2. BEVACIZUMAB [Suspect]
     Indication: OVARIAN CANCER
     Dosage: LAST DOSE PRIOR TO SAE: 09 MARCH 2011.
     Route: 042
     Dates: start: 20110218

REACTIONS (4)
  - FAILURE TO THRIVE [None]
  - DEHYDRATION [None]
  - VOMITING [None]
  - NEUTROPENIA [None]
